FAERS Safety Report 5218410-1 (Version None)
Quarter: 2007Q1

REPORT INFORMATION
  Report Type: 
  Country: None (occurrence: None)
  Receive Date: 20061201
  Receipt Date: 20060711
  Transmission Date: 20070707
  Serious: Yes (Disabling)
  Sender: FDA-Public Use
  Company Number: PHEH2006US07660

PATIENT
  Age: 54 Year
  Sex: Female
  Weight: 49.9 kg

DRUGS (3)
  1. LAMISIL [Suspect]
     Indication: NAIL TINEA
     Dosage: 250 MG, QD, ORAL
     Route: 048
     Dates: start: 20060420, end: 20060531
  2. OPIUM ALKALOIDS AND DERIVATIVES [Concomitant]
  3. SYNTHROID [Concomitant]

REACTIONS (5)
  - AGEUSIA [None]
  - DECREASED APPETITE [None]
  - DYSGEUSIA [None]
  - NAUSEA [None]
  - WEIGHT DECREASED [None]
